FAERS Safety Report 9293923 (Version 2)
Quarter: 2013Q4

REPORT INFORMATION
  Report Type: Spontaneous
  Country: US (occurrence: None)
  Receive Date: 20121218
  Receipt Date: 20131224
  Transmission Date: 20140711
  Serious: Yes (Other)
  Sender: FDA-Public Use
  Company Number: PHEH2012US013879

PATIENT
  Age: 66 Year
  Sex: Female

DRUGS (6)
  1. FEMARA [Suspect]
     Indication: SKIN CANCER
     Route: 048
  2. TAMOXIFEN [Suspect]
  3. LISINOPRIL (LISINOPRIL) [Concomitant]
  4. JANUVIA (SITAGLIPTIN PHOSPHATE) [Concomitant]
  5. SIMVASTATIN (SIMVASTATIN) [Concomitant]
  6. BABY ASPIRIN (ACETYLSALICYLIC ACID) [Concomitant]

REACTIONS (3)
  - Recurrent cancer [None]
  - Dizziness [None]
  - Malaise [None]
